FAERS Safety Report 18712197 (Version 1)
Quarter: 2021Q1

REPORT INFORMATION
  Report Type: Spontaneous
  Country: US (occurrence: US)
  Receive Date: 20210107
  Receipt Date: 20210107
  Transmission Date: 20210419
  Serious: No
  Sender: FDA-Public Use
  Company Number: None

PATIENT
  Age: 68 Year
  Sex: Female
  Weight: 67.5 kg

DRUGS (15)
  1. SIMVASTATIN. [Concomitant]
     Active Substance: SIMVASTATIN
  2. SENIOR?TYPE DAILY MULTIVITAMIN [Concomitant]
  3. VAGIFEM [Concomitant]
     Active Substance: ESTRADIOL
  4. MAGNESIUM [Concomitant]
     Active Substance: MAGNESIUM
  5. VAGIRUX 10 MICROGRAMS VAGINAL TABLETS ESTRADIOL [Suspect]
     Active Substance: ESTRADIOL
     Indication: ATROPHIC VULVOVAGINITIS
     Dosage: ?          QUANTITY:1 TABLET(S);OTHER FREQUENCY:TWICE A WEEK;?
     Route: 067
     Dates: start: 20201221
  6. VITAMIN K2 [Concomitant]
     Active Substance: MENAQUINONE 6
  7. VAGIRUX 10 MICROGRAMS VAGINAL TABLETS ESTRADIOL [Suspect]
     Active Substance: ESTRADIOL
     Indication: VULVOVAGINAL DRYNESS
     Dosage: ?          QUANTITY:1 TABLET(S);OTHER FREQUENCY:TWICE A WEEK;?
     Route: 067
     Dates: start: 20201221
  8. ACETOMINOPHEN [Concomitant]
     Active Substance: ACETAMINOPHEN
  9. MELATONIN [Concomitant]
     Active Substance: MELATONIN
  10. FISH OIL [Concomitant]
     Active Substance: FISH OIL
  11. ELETRIPTAN. [Concomitant]
     Active Substance: ELETRIPTAN
  12. EPIPEN [Concomitant]
     Active Substance: EPINEPHRINE
  13. VENLAFAXINE ER [Concomitant]
     Active Substance: VENLAFAXINE HYDROCHLORIDE
  14. NORTRIPTYLINE [Concomitant]
     Active Substance: NORTRIPTYLINE
  15. VITAMIN D3 [Concomitant]
     Active Substance: CHOLECALCIFEROL

REACTIONS (5)
  - Perineal disorder [None]
  - Vaginal discharge [None]
  - Skin discomfort [None]
  - Product quality issue [None]
  - Skin irritation [None]

NARRATIVE: CASE EVENT DATE: 20201224
